FAERS Safety Report 7359525-1 (Version None)
Quarter: 2011Q1

REPORT INFORMATION
  Report Type: 
  Country: None (occurrence: None)
  Receive Date: 20110317
  Receipt Date: 20110314
  Transmission Date: 20110831
  Serious: Yes (Death, Hospitalization)
  Sender: FDA-Public Use
  Company Number: BR-ACTELION-A-CH2011-45422

PATIENT
  Sex: Male

DRUGS (1)
  1. TRACLEER [Suspect]
     Indication: PULMONARY HYPERTENSION
     Dosage: 125 MG, BID
     Route: 048
     Dates: start: 20100312, end: 20110216

REACTIONS (5)
  - CONDITION AGGRAVATED [None]
  - PULMONARY HYPERTENSION [None]
  - MYOCARDIAL INFARCTION [None]
  - ISCHAEMIC STROKE [None]
  - DYSPNOEA [None]
